FAERS Safety Report 7700498-7 (Version None)
Quarter: 2011Q3

REPORT INFORMATION
  Report Type: 
  Country: None (occurrence: None)
  Receive Date: 20110822
  Receipt Date: 20110809
  Transmission Date: 20111222
  Serious: Yes (Other)
  Sender: FDA-Public Use
  Company Number: US-JNJFOC-20110807550

PATIENT
  Sex: Male

DRUGS (1)
  1. DESITIN MAXIMUM STRENGTH ORIGINAL PASTE [Suspect]
     Indication: DERMATITIS DIAPER
     Dosage: ENOUGH FOR DIAPER AREA AFTER EACH DIAPER CHANGE WHEN NEEDED.
     Route: 061
     Dates: end: 20110101

REACTIONS (5)
  - APPLICATION SITE INFLAMMATION [None]
  - THERMAL BURN [None]
  - APPLICATION SITE BLEEDING [None]
  - APPLICATION SITE ERYTHEMA [None]
  - APPLICATION SITE PAIN [None]
